FAERS Safety Report 7772070-4 (Version None)
Quarter: 2011Q3

REPORT INFORMATION
  Report Type: 
  Country: None (occurrence: None)
  Receive Date: 20110922
  Receipt Date: 20110223
  Transmission Date: 20111222
  Serious: Yes (Other)
  Sender: FDA-Public Use
  Company Number: US-ASTRAZENECA-2007UW02028

PATIENT
  Age: 19 Year
  Sex: Female
  Weight: 100.7 kg

DRUGS (10)
  1. SEROQUEL [Suspect]
     Indication: BIPOLAR DISORDER
     Route: 048
     Dates: start: 20020101, end: 20060101
  2. SEROQUEL [Suspect]
     Route: 048
     Dates: start: 20040101
  3. ATENOLOL [Concomitant]
     Route: 048
     Dates: start: 20040101
  4. RISPERDAL [Concomitant]
     Route: 048
     Dates: start: 20020101, end: 20050101
  5. DEPAKOTE [Concomitant]
     Route: 048
     Dates: start: 20040101
  6. AMITRIPTYLINE HYDROCHLORIDE [Concomitant]
     Route: 048
     Dates: start: 20040101
  7. METOPROLOL TARTRATE [Concomitant]
     Route: 048
     Dates: start: 20040101
  8. RISPERDAL [Concomitant]
     Dosage: 2 MG TO 8 MG DAILY
     Route: 048
     Dates: start: 20040101
  9. THORAZINE [Concomitant]
     Dates: start: 20020101, end: 20030101
  10. DEPAKOTE [Concomitant]
     Route: 048

REACTIONS (21)
  - SOMNOLENCE [None]
  - INFECTION [None]
  - SYNCOPE [None]
  - RESTLESS LEGS SYNDROME [None]
  - ABDOMINAL PAIN [None]
  - HEART RATE INCREASED [None]
  - NAUSEA [None]
  - OROPHARYNGEAL PAIN [None]
  - BACK PAIN [None]
  - GASTRIC DISORDER [None]
  - EAR PAIN [None]
  - MIGRAINE [None]
  - PALPITATIONS [None]
  - TYPE 2 DIABETES MELLITUS [None]
  - WEIGHT INCREASED [None]
  - DYSPNOEA [None]
  - VERTIGO [None]
  - PAIN IN EXTREMITY [None]
  - OBESITY [None]
  - NECK PAIN [None]
  - HEADACHE [None]
